FAERS Safety Report 12903289 (Version 1)
Quarter: 2016Q4

REPORT INFORMATION
  Report Type: Spontaneous
  Country: US (occurrence: US)
  Receive Date: 20161031
  Receipt Date: 20161031
  Transmission Date: 20170207
  Serious: No
  Sender: FDA-Public Use
  Company Number: None

PATIENT
  Age: 67 Year
  Sex: Female

DRUGS (3)
  1. ORENCIA [Suspect]
     Active Substance: ABATACEPT
     Indication: ESSENTIAL HYPERTENSION
  2. ORENCIA [Suspect]
     Active Substance: ABATACEPT
     Indication: MAJOR DEPRESSION
  3. ORENCIA [Suspect]
     Active Substance: ABATACEPT
     Indication: RHINITIS ALLERGIC

REACTIONS (1)
  - Rash [None]

NARRATIVE: CASE EVENT DATE: 20161031
